FAERS Safety Report 16465894 (Version 1)
Quarter: 2019Q2

REPORT INFORMATION
  Report Type: Spontaneous
  Country: US (occurrence: US)
  Receive Date: 20190621
  Receipt Date: 20190621
  Transmission Date: 20190711
  Serious: Yes (Other)
  Sender: FDA-Public Use
  Company Number: US-IMPAX LABORATORIES, LLC-2019-IPXL-01288

PATIENT
  Age: 17 Year
  Sex: Male

DRUGS (4)
  1. BENZACLIN [Concomitant]
     Active Substance: BENZOYL PEROXIDE\CLINDAMYCIN PHOSPHATE
     Indication: ACNE
     Dosage: UNK UNK, DAILY
     Route: 065
  2. MINOCYCLINE HYDROCHLORIDE. [Suspect]
     Active Substance: MINOCYCLINE HYDROCHLORIDE
     Indication: ACNE
     Dosage: 100 MILLIGRAM, 2 /DAY
     Route: 065
  3. SULFACETAMIDE SODIUM AND SULFUR [AVOBENZONE;OCTINOXATE;OCTISALATE;SULF [Concomitant]
     Indication: ACNE
     Dosage: 10-5%CLEANSER, DAILY
     Route: 065
  4. TRETINOIN. [Concomitant]
     Active Substance: TRETINOIN
     Indication: ACNE
     Dosage: 0.1 PERCENT, DAILY
     Route: 065

REACTIONS (3)
  - Cerebral ischaemia [Recovered/Resolved]
  - Anti-neutrophil cytoplasmic antibody positive vasculitis [Recovered/Resolved]
  - IIIrd nerve paralysis [Recovered/Resolved]
